FAERS Safety Report 9489993 (Version 1)
Quarter: 2013Q3

REPORT INFORMATION
  Report Type: Report from Study
  Country: US (occurrence: US)
  Receive Date: 20130829
  Receipt Date: 20130829
  Transmission Date: 20140515
  Serious: Yes (Other)
  Sender: FDA-Public Use
  Company Number: US-ROCHE-1268021

PATIENT
  Age: 39 Year
  Sex: Male

DRUGS (4)
  1. LUCENTIS [Suspect]
     Indication: RETINAL VEIN OCCLUSION
     Route: 050
     Dates: start: 20121112
  2. AVASTIN [Suspect]
     Indication: PRODUCT USED FOR UNKNOWN INDICATION
     Route: 065
     Dates: start: 20120313
  3. BETIMOL [Concomitant]
     Dosage: INSTILL 1 DROP 2 TIMES EVERY DAY BOTH EYES
     Route: 047
  4. LATANOPROST [Concomitant]
     Dosage: INSTILL 1 DROP EVERY BEDTIME BOTH EYES
     Route: 047

REACTIONS (2)
  - Headache [Unknown]
  - Macular oedema [Unknown]
